FAERS Safety Report 17251884 (Version 1)
Quarter: 2019Q4

REPORT INFORMATION
  Report Type: Spontaneous
  Country: US (occurrence: US)
  Receive Date: 20191214
  Receipt Date: 20191214
  Transmission Date: 20200122
  Serious: No
  Sender: FDA-Public Use
  Company Number: None

PATIENT
  Age: 55 Year
  Sex: Female
  Weight: 132 kg

DRUGS (1)
  1. ASPIRIN. [Suspect]
     Active Substance: ASPIRIN
     Dates: end: 20191023

REACTIONS (3)
  - Ascites [None]
  - Pulmonary mass [None]
  - Endometrial cancer stage IV [None]

NARRATIVE: CASE EVENT DATE: 20191205
